FAERS Safety Report 8871944 (Version 3)
Quarter: 2012Q4

REPORT INFORMATION
  Report Type: 
  Country: US (occurrence: US)
  Receive Date: 20121029
  Receipt Date: 20121218
  Transmission Date: 20130627
  Serious: Yes (Hospitalization, Other)
  Sender: FDA-Public Use
  Company Number: US-CELGENEUS-163-21880-12102843

PATIENT
  Age: 87 Year
  Sex: Female

DRUGS (4)
  1. REVLIMID [Suspect]
     Indication: MDS
     Dosage: 10 Milligram
     Route: 048
     Dates: start: 20070831
  2. SOTALOL [Concomitant]
     Indication: DRUG USE FOR UNKNOWN INDICATION
     Route: 065
  3. SOTALOL [Concomitant]
     Route: 065
  4. PAIN MEDICATION [Concomitant]
     Indication: PAIN
     Route: 065

REACTIONS (5)
  - Spinal compression fracture [Unknown]
  - Small intestinal obstruction [Recovered/Resolved]
  - Fall [Unknown]
  - Atrial fibrillation [Recovered/Resolved]
  - Haemoglobin decreased [Recovered/Resolved]
